FAERS Safety Report 23402407 (Version 1)
Quarter: 2024Q1

REPORT INFORMATION
  Report Type: Other
  Country: US (occurrence: US)
  Receive Date: 20240115
  Receipt Date: 20240115
  Transmission Date: 20240410
  Serious: No
  Sender: FDA-Public Use
  Company Number: US-ELITEPHARMA-2023ELT00048

PATIENT
  Age: 51 Year
  Weight: 74 kg

DRUGS (4)
  1. DEXTROAMPHET SACCHARAT, AMPHET ASPARTATE, DEXTROAMPHET SULFATE AND AMP [Suspect]
     Active Substance: AMPHETAMINE ASPARTATE\AMPHETAMINE ASPARTATE MONOHYDRATE\AMPHETAMINE SULFATE\DEXTROAMPHETAMINE SACCHA
     Indication: Attention deficit hyperactivity disorder
     Dosage: 30 MG, 2X/DAY, 30-60 MG PER DAY DEPENDING ON HOW SHE FELT
     Route: 048
     Dates: start: 202203, end: 202301
  2. NP THYROID [Concomitant]
     Active Substance: LEVOTHYROXINE\LIOTHYRONINE
  3. UNSPECIFIED INGREDIENT [Concomitant]
     Active Substance: UNSPECIFIED INGREDIENT
  4. TESTOSTERONE [Concomitant]
     Active Substance: TESTOSTERONE

REACTIONS (5)
  - Drug ineffective [Recovered/Resolved]
  - Therapeutic product effect variable [Recovered/Resolved]
  - Product formulation issue [Recovered/Resolved]
  - Product substitution issue [Recovered/Resolved]
  - Amphetamines positive [Unknown]

NARRATIVE: CASE EVENT DATE: 20220301
